FAERS Safety Report 14257270 (Version 1)
Quarter: 2017Q4

REPORT INFORMATION
  Report Type: Spontaneous
  Country: JP (occurrence: JP)
  Receive Date: 20171206
  Receipt Date: 20171206
  Transmission Date: 20180321
  Serious: Yes (Hospitalization, Other)
  Sender: FDA-Public Use
  Company Number: JP-ALEMBIC PHARMACUETICALS LIMITED-2017SCAL000954

PATIENT
  Age: 21 Year
  Sex: Female

DRUGS (3)
  1. LITHIUM CARBONATE. [Suspect]
     Active Substance: LITHIUM CARBONATE
     Indication: SCHIZOPHRENIA
     Dosage: 1200 MG, QD
  2. TELMISARTAN. [Suspect]
     Active Substance: TELMISARTAN
     Indication: DIASTOLIC HYPERTENSION
     Dosage: 40 MG, QD
  3. LITHIUM CARBONATE. [Suspect]
     Active Substance: LITHIUM CARBONATE
     Indication: MANIA

REACTIONS (4)
  - Tremor [Unknown]
  - Toxicity to various agents [Unknown]
  - Depressed level of consciousness [Unknown]
  - Antipsychotic drug level increased [Unknown]
